FAERS Safety Report 12950241 (Version 1)
Quarter: 2016Q4

REPORT INFORMATION
  Report Type: Spontaneous
  Country: US (occurrence: US)
  Receive Date: 20161116
  Receipt Date: 20161116
  Transmission Date: 20170207
  Serious: Yes (Life-Threatening, Hospitalization, Disabling)
  Sender: FDA-Public Use
  Company Number: None

PATIENT
  Age: 39 Year
  Sex: Male
  Weight: 90.8 kg

DRUGS (12)
  1. SERMORELIN ACETATE. [Suspect]
     Active Substance: SERMORELIN ACETATE
     Indication: POSTOPERATIVE CARE
     Dosage: ?          QUANTITY:9 MR IMP? FHJ?554/ ALP/H4;?
     Dates: start: 201603, end: 20161018
  2. CEFAZOLIN [Concomitant]
     Active Substance: CEFAZOLIN
  3. DIAZEPAM. [Concomitant]
     Active Substance: DIAZEPAM
  4. DULOXETINE. [Concomitant]
     Active Substance: DULOXETINE
  5. DHEA [Concomitant]
     Active Substance: PRASTERONE
  6. VANCOMYCIN [Concomitant]
     Active Substance: VANCOMYCIN
  7. VITAMIN D [Concomitant]
     Active Substance: CHOLECALCIFEROL
  8. BACLOFEN. [Concomitant]
     Active Substance: BACLOFEN
  9. GABAPENTIN. [Concomitant]
     Active Substance: GABAPENTIN
  10. OXYCODONE [Concomitant]
     Active Substance: OXYCODONE
  11. ZINC [Concomitant]
     Active Substance: ZINC\ZINC CHLORIDE
  12. MULTI-VITAMINS [Concomitant]

REACTIONS (3)
  - Wound [None]
  - Neck pain [None]
  - Infection [None]

NARRATIVE: CASE EVENT DATE: 20160909
